FAERS Safety Report 9181862 (Version 1)
Quarter: 2013Q1

REPORT INFORMATION
  Report Type: Spontaneous
  Country: US (occurrence: None)
  Receive Date: 20130321
  Receipt Date: 20130321
  Transmission Date: 20140127
  Serious: Yes (Hospitalization)
  Sender: FDA-Public Use
  Company Number: None

PATIENT
  Age: 65 Year
  Sex: Male
  Weight: 104.5 kg

DRUGS (2)
  1. WARFARIN [Suspect]
     Indication: ATRIAL FIBRILLATION
     Dosage: ?09/17/2012  THRU  N/A
     Dates: start: 20120917
  2. ASPIRIN [Suspect]
     Indication: ATRIAL FIBRILLATION
     Dosage: 81 MG  EVERY DAY   PO?~05/14/2012   THRU   ~12/14/2012
     Route: 048
     Dates: start: 20120514, end: 20121214

REACTIONS (2)
  - Fall [None]
  - Subdural haematoma [None]
